FAERS Safety Report 12537728 (Version 1)
Quarter: 2016Q3

REPORT INFORMATION
  Report Type: Spontaneous
  Country: GB (occurrence: GB)
  Receive Date: 20160707
  Receipt Date: 20160707
  Transmission Date: 20161109
  Serious: Yes (Death, Other)
  Sender: FDA-Public Use
  Company Number: GB-ASTRAZENECA-2016SE71288

PATIENT
  Age: 54 Year
  Sex: Female
  Weight: 120.2 kg

DRUGS (16)
  1. OXYBUTYNIN [Concomitant]
     Active Substance: OXYBUTYNIN
  2. ASPIRIN. [Concomitant]
     Active Substance: ASPIRIN
  3. GABAPENTIN. [Concomitant]
     Active Substance: GABAPENTIN
  4. MATRIFEN [Concomitant]
     Active Substance: FENTANYL
  5. MONOMIL XL [Concomitant]
     Active Substance: ISOSORBIDE MONONITRATE
  6. AMLODIPINE [Concomitant]
     Active Substance: AMLODIPINE BESYLATE
  7. LANSOPRAZOLE. [Concomitant]
     Active Substance: LANSOPRAZOLE
  8. PRIADEL [Concomitant]
     Active Substance: LITHIUM CARBONATE
  9. LEVOTHYROXINE. [Concomitant]
     Active Substance: LEVOTHYROXINE
  10. RISPERIDONE. [Concomitant]
     Active Substance: RISPERIDONE
  11. SIMVASTATIN. [Concomitant]
     Active Substance: SIMVASTATIN
  12. MIRTAZAPINE. [Concomitant]
     Active Substance: MIRTAZAPINE
  13. VENLALIC XL [Concomitant]
     Active Substance: VENLAFAXINE HYDROCHLORIDE
  14. CODEINE [Concomitant]
     Active Substance: CODEINE
  15. DAPAGLIFLOZIN [Suspect]
     Active Substance: DAPAGLIFLOZIN
     Indication: TYPE 2 DIABETES MELLITUS
     Route: 048
     Dates: start: 20141007
  16. PARACETAMOL [Concomitant]
     Active Substance: ACETAMINOPHEN

REACTIONS (2)
  - Infection [Unknown]
  - Diabetic ketoacidosis [Fatal]

NARRATIVE: CASE EVENT DATE: 201512
